FAERS Safety Report 4350389-7 (Version None)
Quarter: 2004Q2

REPORT INFORMATION
  Report Type: 
  Country: None (occurrence: None)
  Receive Date: 20040428
  Receipt Date: 20040428
  Transmission Date: 20050107
  Serious: Yes (Death)
  Sender: FDA-Public Use
  Company Number: None

PATIENT
  Sex: Male
  Weight: 18.1439 kg

DRUGS (4)
  1. ETOPOSIDE [Suspect]
     Dosage: SEE ITEM B5
  2. CISPLATIN [Suspect]
  3. IFOSFAMIDE [Suspect]
  4. NEUPOGEN [Suspect]

REACTIONS (7)
  - ABDOMINAL PAIN UPPER [None]
  - ACCIDENTAL EXPOSURE [None]
  - ACUTE MYELOID LEUKAEMIA [None]
  - BRAIN DEATH [None]
  - CHROMOSOME ABNORMALITY [None]
  - EYE SWELLING [None]
  - TOOTH DISORDER [None]
